FAERS Safety Report 11269159 (Version 1)
Quarter: 2015Q3

REPORT INFORMATION
  Report Type: Spontaneous
  Country: US (occurrence: US)
  Receive Date: 20150714
  Receipt Date: 20150714
  Transmission Date: 20151125
  Serious: No
  Sender: FDA-Public Use
  Company Number: PHEH2015US004157

PATIENT
  Sex: Male

DRUGS (2)
  1. DIOVAN [Suspect]
     Active Substance: VALSARTAN
     Dosage: 40 MG, TID
     Route: 065
  2. DIOVAN [Suspect]
     Active Substance: VALSARTAN
     Indication: RENAL IMPAIRMENT
     Dosage: 160 MG, QD
     Route: 065

REACTIONS (2)
  - Blood pressure decreased [Unknown]
  - Product use issue [Unknown]
